FAERS Safety Report 11174054 (Version 1)
Quarter: 2015Q2

REPORT INFORMATION
  Report Type: Spontaneous
  Country: SE (occurrence: SE)
  Receive Date: 20150609
  Receipt Date: 20150609
  Transmission Date: 20150821
  Serious: Yes (Other)
  Sender: FDA-Public Use
  Company Number: SE-AUROBINDO-AUR-APL-2015-04941

PATIENT
  Age: 44 Year
  Sex: Male

DRUGS (1)
  1. SERTRALINE [Suspect]
     Active Substance: SERTRALINE HYDROCHLORIDE
     Indication: TINNITUS
     Dosage: UNK
     Route: 065
     Dates: end: 20150315

REACTIONS (3)
  - Tinnitus [Unknown]
  - Suicidal ideation [Unknown]
  - Panic disorder [Unknown]

NARRATIVE: CASE EVENT DATE: 20150228
